FAERS Safety Report 10192401 (Version 2)
Quarter: 2014Q2

REPORT INFORMATION
  Report Type: Spontaneous
  Country: US (occurrence: US)
  Receive Date: 20140523
  Receipt Date: 20140523
  Transmission Date: 20141212
  Serious: No
  Sender: FDA-Public Use
  Company Number: US-PFIZER INC-2013371027

PATIENT
  Age: 62 Year
  Sex: Female
  Weight: 52.15 kg

DRUGS (6)
  1. LYRICA [Suspect]
     Indication: NERVE INJURY
     Dosage: 200 MG, 2X/DAY
     Route: 048
     Dates: start: 2014, end: 2014
  2. HYDROCHLOROTHIAZIDE [Concomitant]
     Indication: HYPERTENSION
     Dosage: 25 MG, DAILY
  3. MORPHINE SULFATE [Concomitant]
     Indication: ARTHRITIS
     Dosage: 50 MG, 2X/DAY
  4. LORAZEPAM [Concomitant]
     Indication: ANXIETY
     Dosage: 0.5 MG, 3X/DAY
  5. CYMBALTA [Concomitant]
     Indication: ANXIETY
     Dosage: 60 MG, DAILY
  6. VICODIN [Concomitant]
     Indication: ARTHRITIS
     Dosage: UNK

REACTIONS (1)
  - Pain [Not Recovered/Not Resolved]
